FAERS Safety Report 17242394 (Version 2)
Quarter: 2020Q2

REPORT INFORMATION
  Report Type: Report from Study
  Country: US (occurrence: US)
  Receive Date: 20200107
  Receipt Date: 20200519
  Transmission Date: 20200713
  Serious: No
  Sender: FDA-Public Use
  Company Number: NVSC2020US001498

PATIENT
  Age: 66 Year
  Sex: Female

DRUGS (1)
  1. BEOVU [Suspect]
     Active Substance: BROLUCIZUMAB-DBLL
     Indication: NEOVASCULAR AGE-RELATED MACULAR DEGENERATION
     Dosage: UNK UNK, QD
     Route: 047
     Dates: start: 201912

REACTIONS (2)
  - Eye disorder [Recovering/Resolving]
  - Intraocular pressure increased [Unknown]

NARRATIVE: CASE EVENT DATE: 20191218
